FAERS Safety Report 13898051 (Version 1)
Quarter: 2017Q3

REPORT INFORMATION
  Report Type: Spontaneous
  Country: US (occurrence: None)
  Receive Date: 20170823
  Receipt Date: 20170823
  Transmission Date: 20171127
  Serious: Yes (Death, Hospitalization)
  Sender: FDA-Public Use
  Company Number: None

PATIENT
  Age: 7 Year
  Sex: Female
  Weight: 7.9 kg

DRUGS (8)
  1. CISPLATIN. [Suspect]
     Active Substance: CISPLATIN
     Dates: end: 20091019
  2. G-CSF (FILGRASTIM, AMGEN) [Suspect]
     Active Substance: FILGRASTIM
     Dates: end: 20091101
  3. ETOPOSIDE (VP-16) [Suspect]
     Active Substance: ETOPOSIDE
     Dates: end: 20091019
  4. MESNA. [Suspect]
     Active Substance: MESNA
     Dates: end: 20091018
  5. THIOTEPA. [Suspect]
     Active Substance: THIOTEPA
     Dates: end: 20100103
  6. VINCRISTINE SULFATE. [Suspect]
     Active Substance: VINCRISTINE SULFATE
     Dates: end: 20091110
  7. CARBOPLATIN. [Suspect]
     Active Substance: CARBOPLATIN
     Dates: end: 20100103
  8. CYCLOPHOSPHAMIDE. [Suspect]
     Active Substance: CYCLOPHOSPHAMIDE
     Dates: end: 20091018

REACTIONS (2)
  - Swelling face [None]
  - Osteosarcoma [None]

NARRATIVE: CASE EVENT DATE: 20160330
